FAERS Safety Report 6999310-3 (Version None)
Quarter: 2010Q3

REPORT INFORMATION
  Report Type: 
  Country: None (occurrence: None)
  Receive Date: 20100920
  Receipt Date: 20080513
  Transmission Date: 20110219
  Serious: Yes (Other)
  Sender: FDA-Public Use
  Company Number: US-ASTRAZENECA-2006UW13629

PATIENT
  Age: 246 Month
  Sex: Male
  Weight: 113.4 kg

DRUGS (17)
  1. SEROQUEL [Suspect]
     Route: 048
  2. ZYPREXA [Suspect]
     Indication: ANXIETY
     Dates: start: 19990104
  3. ZYPREXA [Suspect]
     Indication: AGITATION
     Dates: start: 19990104
  4. ZYPREXA [Suspect]
     Indication: PSYCHOTIC DISORDER
     Dates: start: 19990104
  5. ZYPREXA [Suspect]
     Route: 065
     Dates: start: 19990501, end: 20010101
  6. ZYPREXA [Suspect]
     Route: 065
     Dates: start: 19990501, end: 20010101
  7. ZYPREXA [Suspect]
     Route: 065
     Dates: start: 19990501, end: 20010101
  8. RISPERDAL [Suspect]
     Indication: ANXIETY
     Route: 065
     Dates: start: 20010201, end: 20020701
  9. RISPERDAL [Suspect]
     Indication: AGITATION
     Route: 065
     Dates: start: 20010201, end: 20020701
  10. RISPERDAL [Suspect]
     Dates: start: 20010226
  11. RISPERDAL [Suspect]
     Dates: start: 20010226
  12. ATIVAN [Concomitant]
     Indication: AGITATION
     Dates: start: 19990528
  13. KLONOPIN [Concomitant]
     Indication: AGITATION
     Dates: start: 19990529
  14. CLONIDINE HCL [Concomitant]
     Dosage: 0.1 MG TABLET DISPENSED
     Dates: start: 19990116
  15. LUVOX [Concomitant]
     Indication: DEPRESSION
     Dosage: 50-100 MG
     Dates: start: 19990116
  16. HUMULIN N [Concomitant]
     Dates: start: 19990529
  17. TRICOR [Concomitant]
     Dates: start: 20010323

REACTIONS (2)
  - DIABETES MELLITUS [None]
  - DIABETIC KETOACIDOSIS [None]
